FAERS Safety Report 16833031 (Version 2)
Quarter: 2020Q2

REPORT INFORMATION
  Report Type: Report from Study
  Country: IT (occurrence: IT)
  Receive Date: 20190920
  Receipt Date: 20200515
  Transmission Date: 20200713
  Serious: Yes (Hospitalization)
  Sender: FDA-Public Use
  Company Number: IT-ELI_LILLY_AND_COMPANY-IT201909004681

PATIENT
  Age: 58 Year
  Sex: Female

DRUGS (3)
  1. FLECAINIDE ACETATE. [Suspect]
     Active Substance: FLECAINIDE ACETATE
     Indication: ARRHYTHMIA
     Dosage: 200 MG, UNKNOWN
     Route: 048
     Dates: start: 20190826, end: 20190826
  2. FLUOXETINE HYDROCHLORIDE. [Suspect]
     Active Substance: FLUOXETINE HYDROCHLORIDE
     Indication: MENTAL DISORDER
     Dosage: 40 MG, UNKNOWN
     Route: 048
     Dates: start: 20190826, end: 20190826
  3. XANAX [Suspect]
     Active Substance: ALPRAZOLAM
     Indication: MENTAL DISORDER
     Dosage: 40 DROPS, UNKNOWN
     Route: 048
     Dates: start: 20190826, end: 20190826

REACTIONS (2)
  - Sopor [Recovering/Resolving]
  - Medication error [Recovering/Resolving]

NARRATIVE: CASE EVENT DATE: 20190826
